FAERS Safety Report 5207240-2 (Version None)
Quarter: 2007Q1

REPORT INFORMATION
  Report Type: 
  Country: None (occurrence: None)
  Receive Date: 20070112
  Receipt Date: 20070103
  Transmission Date: 20070707
  Serious: Yes (Other)
  Sender: FDA-Public Use
  Company Number: US-JNJFOC-20070101018

PATIENT
  Sex: Female
  Weight: 106.6 kg

DRUGS (3)
  1. TOPAMAX [Suspect]
     Route: 048
  2. TOPAMAX [Suspect]
     Indication: MIGRAINE PROPHYLAXIS
     Route: 048
  3. TOPROL-XL [Concomitant]
     Indication: HYPERTENSION

REACTIONS (6)
  - BACK PAIN [None]
  - CONSTIPATION [None]
  - HALLUCINATION, VISUAL [None]
  - IRRITABILITY [None]
  - OPTIC NERVE DISORDER [None]
  - PAIN [None]
